FAERS Safety Report 16573197 (Version 3)
Quarter: 2019Q4

REPORT INFORMATION
  Report Type: Spontaneous
  Country: JP (occurrence: JP)
  Receive Date: 20190715
  Receipt Date: 20191122
  Transmission Date: 20200122
  Serious: Yes (Death, Other)
  Sender: FDA-Public Use
  Company Number: JP-LUNDBECK-DKLU2057254

PATIENT
  Age: 9 Month
  Sex: Female
  Weight: 8 kg

DRUGS (5)
  1. SABRIL [Suspect]
     Active Substance: VIGABATRIN
     Route: 048
     Dates: start: 20181005, end: 20181029
  2. SODIUM VALPROATE [Concomitant]
     Active Substance: VALPROATE SODIUM
     Indication: INFANTILE SPASMS
     Route: 065
     Dates: start: 20180809, end: 20181120
  3. SABRIL [Suspect]
     Active Substance: VIGABATRIN
     Indication: INFANTILE SPASMS
     Route: 048
     Dates: start: 20180921, end: 20180927
  4. CORTROSYN Z [Suspect]
     Active Substance: COSYNTROPIN
     Indication: PRODUCT USED FOR UNKNOWN INDICATION
     Route: 065
  5. SABRIL [Suspect]
     Active Substance: VIGABATRIN
     Route: 048
     Dates: start: 20180928, end: 20181004

REACTIONS (2)
  - Drug ineffective [Unknown]
  - Pneumonia [Fatal]

NARRATIVE: CASE EVENT DATE: 20181024
